FAERS Safety Report 5546797-9 (Version None)
Quarter: 2007Q4

REPORT INFORMATION
  Report Type: 
  Country: None (occurrence: None)
  Receive Date: 20071206
  Receipt Date: 20071203
  Transmission Date: 20080405
  Serious: Yes (Hospitalization)
  Sender: FDA-Public Use
  Company Number: E2090-00353-SPO-GB

PATIENT
  Age: 28 Year
  Sex: Female

DRUGS (2)
  1. ZONEGRAN [Suspect]
     Dosage: ORAL
     Route: 048
  2. LEVETIRACETAM [Concomitant]

REACTIONS (1)
  - APLASTIC ANAEMIA [None]
